FAERS Safety Report 9678686 (Version 1)
Quarter: 2013Q4

REPORT INFORMATION
  Report Type: Spontaneous
  Country: GB (occurrence: GB)
  Receive Date: 20131108
  Receipt Date: 20131108
  Transmission Date: 20140711
  Serious: Yes (Other)
  Sender: FDA-Public Use
  Company Number: GB-ROCHE-1296160

PATIENT
  Age: 62 Year
  Sex: Male

DRUGS (4)
  1. PEGASYS [Suspect]
     Indication: CHRONIC HEPATITIS B
     Route: 058
  2. PEGASYS [Suspect]
     Indication: CHRONIC HEPATITIS C
  3. COPEGUS [Suspect]
     Indication: CHRONIC HEPATITIS B
     Route: 048
  4. COPEGUS [Suspect]
     Indication: CHRONIC HEPATITIS C

REACTIONS (3)
  - Organising pneumonia [Recovered/Resolved]
  - Headache [Unknown]
  - Lethargy [Unknown]
